FAERS Safety Report 21845594 (Version 1)
Quarter: 2023Q1

REPORT INFORMATION
  Report Type: Spontaneous
  Country: ET (occurrence: ET)
  Receive Date: 20230111
  Receipt Date: 20230111
  Transmission Date: 20230417
  Serious: Yes (Hospitalization, Other)
  Sender: FDA-Public Use
  Company Number: ET-NATCOUSA-2023-NATCOUSA-000130

PATIENT
  Age: 45 Year
  Sex: Male

DRUGS (1)
  1. ONDANSETRON [Suspect]
     Active Substance: ONDANSETRON
     Indication: Dyspepsia
     Dosage: WITHIN A FEW SECONDS AFTER TAKING AROUND 0.5 ML (2 MG) OF ONDANSETRON
     Route: 042

REACTIONS (1)
  - Kounis syndrome [Recovered/Resolved]
